FAERS Safety Report 14574212 (Version 13)
Quarter: 2020Q2

REPORT INFORMATION
  Report Type: Report from Study
  Country: US (occurrence: US)
  Receive Date: 20180226
  Receipt Date: 20200624
  Transmission Date: 20200713
  Serious: Yes (Hospitalization)
  Sender: FDA-Public Use
  Company Number: US-ACTELION-A-NJ2018-168003

PATIENT
  Age: 68 Year
  Sex: Female
  Weight: 86.17 kg

DRUGS (5)
  1. OPSUMIT [Suspect]
     Active Substance: MACITENTAN
     Indication: PULMONARY HYPERTENSION
     Dosage: 10 MG, QD
     Route: 048
     Dates: start: 20140127
  2. XARELTO [Concomitant]
     Active Substance: RIVAROXABAN
  3. OXYGEN. [Concomitant]
     Active Substance: OXYGEN
  4. OPSUMIT [Suspect]
     Active Substance: MACITENTAN
     Dosage: 10 MG, QD
     Route: 048
  5. ADVAIR HFA [Suspect]
     Active Substance: FLUTICASONE PROPIONATE\SALMETEROL XINAFOATE
     Indication: PRODUCT USED FOR UNKNOWN INDICATION
     Route: 065

REACTIONS (19)
  - Pericardial effusion [Recovered/Resolved]
  - Fluid retention [Unknown]
  - Malaise [Unknown]
  - Cardiac failure congestive [Recovered/Resolved]
  - Unevaluable event [Unknown]
  - Joint stiffness [Unknown]
  - Tendon disorder [Unknown]
  - Back pain [Unknown]
  - Dyspnoea [Unknown]
  - Hypercholesterolaemia [Unknown]
  - Oral candidiasis [Unknown]
  - Spinal operation [Unknown]
  - Pleural effusion [Recovered/Resolved]
  - Ankle operation [Unknown]
  - Peripheral swelling [Unknown]
  - Arthralgia [Unknown]
  - Loss of control of legs [Unknown]
  - Urinary incontinence [Unknown]
  - Injury [Unknown]

NARRATIVE: CASE EVENT DATE: 201802
